FAERS Safety Report 9125787 (Version 1)
Quarter: 2013Q1

REPORT INFORMATION
  Report Type: Spontaneous
  Country: IT (occurrence: IT)
  Receive Date: 20130117
  Receipt Date: 20130117
  Transmission Date: 20140127
  Serious: Yes (Death)
  Sender: FDA-Public Use
  Company Number: IT-ROCHE-1180345

PATIENT
  Sex: Female
  Weight: 65 kg

DRUGS (2)
  1. ROCEFIN [Suspect]
     Indication: BRONCHITIS
     Route: 030
     Dates: start: 20121215, end: 20121215
  2. SUGUAN [Concomitant]
     Indication: DIABETES MELLITUS
     Dosage: 40MG + 2.5 MG TABS
     Route: 048

REACTIONS (1)
  - Death [Fatal]
